FAERS Safety Report 10450246 (Version 1)
Quarter: 2014Q3

REPORT INFORMATION
  Report Type: Spontaneous
  Country: US (occurrence: None)
  Receive Date: 20140910
  Receipt Date: 20140910
  Transmission Date: 20150326
  Serious: No
  Sender: FDA-Public Use
  Company Number: 14000099

PATIENT
  Age: 57 Year
  Sex: Female

DRUGS (4)
  1. POTASSIUM CITRATE. [Suspect]
     Active Substance: POTASSIUM CITRATE
     Indication: BLOOD POTASSIUM DECREASED
     Route: 048
  2. INDAPAMIDE. [Concomitant]
     Active Substance: INDAPAMIDE
  3. CALCIUM [Concomitant]
     Active Substance: CALCIUM
  4. VITAMIN D (ERGOCALCIFEROL) [Concomitant]
     Active Substance: ERGOCALCIFEROL

REACTIONS (3)
  - Diarrhoea [None]
  - Drug ineffective for unapproved indication [None]
  - Medication residue present [None]

NARRATIVE: CASE EVENT DATE: 201311
